FAERS Safety Report 14878568 (Version 1)
Quarter: 2018Q2

REPORT INFORMATION
  Report Type: Spontaneous
  Country: FR (occurrence: FR)
  Receive Date: 20180511
  Receipt Date: 20180511
  Transmission Date: 20180711
  Serious: Yes (Other)
  Sender: FDA-Public Use
  Company Number: FR-MERCK KGAA-2047597

PATIENT
  Age: 70 Year
  Sex: Female

DRUGS (1)
  1. NOVOTHYROX [Suspect]
     Active Substance: LEVOTHYROXINE SODIUM
     Indication: POST PROCEDURAL HYPOTHYROIDISM
     Dates: start: 20170317, end: 2017

REACTIONS (18)
  - Pain [None]
  - Nervousness [None]
  - Loss of personal independence in daily activities [None]
  - Gait disturbance [None]
  - Fatigue [None]
  - Decreased activity [None]
  - Irritability [None]
  - Arthralgia [Recovering/Resolving]
  - Presyncope [None]
  - Disturbance in attention [None]
  - Vomiting [None]
  - Migraine [None]
  - Dizziness [None]
  - Anxiety [None]
  - Psychiatric symptom [None]
  - Nausea [Recovering/Resolving]
  - Insomnia [None]
  - Mobility decreased [None]

NARRATIVE: CASE EVENT DATE: 2017
